FAERS Safety Report 22626483 (Version 1)
Quarter: 2023Q2

REPORT INFORMATION
  Report Type: Report from Study
  Country: CA (occurrence: CA)
  Receive Date: 20230621
  Receipt Date: 20230621
  Transmission Date: 20230722
  Serious: Yes (Other)
  Sender: FDA-Public Use
  Company Number: CA-GILEAD-2023-0622441

PATIENT
  Age: 76 Year
  Sex: Female

DRUGS (4)
  1. SACITUZUMAB GOVITECAN-HZIY [Suspect]
     Active Substance: SACITUZUMAB GOVITECAN-HZIY
     Indication: Triple negative breast cancer
     Dosage: 730 MG
     Route: 042
     Dates: start: 20230302
  2. SACITUZUMAB GOVITECAN-HZIY [Suspect]
     Active Substance: SACITUZUMAB GOVITECAN-HZIY
     Dosage: 450 MG
     Route: 042
     Dates: start: 20230405, end: 20230419
  3. SACITUZUMAB GOVITECAN-HZIY [Suspect]
     Active Substance: SACITUZUMAB GOVITECAN-HZIY
     Dosage: 400 MG
     Route: 042
     Dates: start: 20230302
  4. SACITUZUMAB GOVITECAN-HZIY [Suspect]
     Active Substance: SACITUZUMAB GOVITECAN-HZIY
     Dosage: DAY 1 (UNSPECIFIED CYCLE)
     Route: 042
     Dates: start: 20230524

REACTIONS (5)
  - Disease progression [Unknown]
  - Neutrophil count decreased [Unknown]
  - Inappropriate schedule of product administration [Not Recovered/Not Resolved]
  - Weight fluctuation [Unknown]
  - Weight fluctuation [Unknown]

NARRATIVE: CASE EVENT DATE: 20230301
